FAERS Safety Report 21484820 (Version 1)
Quarter: 2022Q4

REPORT INFORMATION
  Report Type: Spontaneous
  Country: US (occurrence: US)
  Receive Date: 20221020
  Receipt Date: 20221020
  Transmission Date: 20230112
  Serious: No
  Sender: FDA-Public Use
  Company Number: US-AMGEN-USASP2022179604

PATIENT
  Age: 40 Year
  Sex: Female

DRUGS (16)
  1. XGEVA [Suspect]
     Active Substance: DENOSUMAB
     Indication: Metastases to bone
     Dosage: UNK
     Route: 065
     Dates: start: 20191120
  2. HERCEPTIN [Concomitant]
     Active Substance: TRASTUZUMAB
  3. PERJETA [Concomitant]
     Active Substance: PERTUZUMAB
  4. PHESGO [Concomitant]
     Active Substance: HYALURONIDASE-ZZXF\PERTUZUMAB\TRASTUZUMAB
  5. DOCETAXEL [Concomitant]
     Active Substance: DOCETAXEL
  6. CHOLECALCIFEROL [Concomitant]
     Active Substance: CHOLECALCIFEROL
  7. DOCONEXENT [Concomitant]
     Active Substance: DOCONEXENT
  8. CLARITIN [Concomitant]
     Active Substance: LORATADINE
  9. CICLOPIROX [Concomitant]
     Active Substance: CICLOPIROX
  10. Hyalo gyn [Concomitant]
  11. SYSTANE (HYPROMELLOSE 2910 (4000 MPA.S)) [Concomitant]
     Active Substance: HYPROMELLOSE 2910 (4000 MPA.S)
  12. LEVOTHYROXINE [Concomitant]
     Active Substance: LEVOTHYROXINE
  13. IBUPROFEN [Concomitant]
     Active Substance: IBUPROFEN
  14. AMOXICILLIN [Concomitant]
     Active Substance: AMOXICILLIN
  15. REFRESH CLASSIC [Concomitant]
     Active Substance: POLYVINYL ALCOHOL\POVIDONE
  16. MODERNA COVID-19 VACCINE [Concomitant]
     Active Substance: ELASOMERAN

REACTIONS (1)
  - Injection site reaction [Recovered/Resolved]

NARRATIVE: CASE EVENT DATE: 20210526
